FAERS Safety Report 5972996-8 (Version None)
Quarter: 2008Q4

REPORT INFORMATION
  Report Type: 
  Country: None (occurrence: None)
  Receive Date: 20081201
  Receipt Date: 20081124
  Transmission Date: 20090506
  Serious: Yes (Hospitalization)
  Sender: FDA-Public Use
  Company Number: PHHY2008CA24322

PATIENT
  Sex: Male

DRUGS (8)
  1. SANDOSTATIN LAR [Suspect]
     Indication: NEUROENDOCRINE CARCINOMA
     Dosage: 30 MG EVERY 4 WEEKS
     Route: 030
     Dates: start: 20080916
  2. NITROLINGUAL [Concomitant]
     Indication: CARDIAC DISORDER
  3. DIOVAN [Concomitant]
     Dosage: 320 MG, QD
  4. NOVO-METOPROL [Concomitant]
     Dosage: 1.5 DF, BID
     Route: 048
  5. NORVASC [Concomitant]
     Dosage: 5 MG, QD
  6. KLAVAX [Concomitant]
     Dosage: 75 MG, QD
  7. DILAUDID [Concomitant]
     Indication: PAIN
  8. NOVO-FAMOTIDINE [Concomitant]
     Indication: ANTACID THERAPY
     Dosage: 40 MG/DAY

REACTIONS (2)
  - CEREBROVASCULAR ACCIDENT [None]
  - PAIN [None]
